FAERS Safety Report 11785093 (Version 1)
Quarter: 2015Q4

REPORT INFORMATION
  Report Type: Spontaneous
  Country: US (occurrence: None)
  Receive Date: 20151125
  Receipt Date: 20151125
  Transmission Date: 20160305
  Serious: Yes (Death)
  Sender: FDA-Public Use
  Company Number: None

PATIENT

DRUGS (2)
  1. SOFOSBUVIR GILEAD [Suspect]
     Active Substance: SOFOSBUVIR
  2. SIMEPREVIR JOHNSON + JOHNSON [Suspect]
     Active Substance: SIMEPREVIR
     Dates: start: 20150717

REACTIONS (1)
  - Hepatic cancer [None]
